FAERS Safety Report 9309284 (Version 1)
Quarter: 2013Q2

REPORT INFORMATION
  Report Type: Spontaneous
  Country: US (occurrence: US)
  Receive Date: 20130525
  Receipt Date: 20130525
  Transmission Date: 20140414
  Serious: No
  Sender: FDA-Public Use
  Company Number: US-BRISTOL-MYERS SQUIBB COMPANY-18581256

PATIENT
  Age: 54 Year
  Sex: Female
  Weight: 92.52 kg

DRUGS (3)
  1. BYDUREON 2MG VIAL + SYRINGE [Suspect]
     Indication: TYPE 2 DIABETES MELLITUS
     Route: 058
     Dates: start: 2012
  2. METFORMIN [Concomitant]
     Indication: TYPE 2 DIABETES MELLITUS
     Route: 048
  3. CORTICOSTEROIDS, DERMATOLOGICAL PREPARATIONS [Concomitant]
     Indication: INJECTION SITE PRURITUS
     Route: 061

REACTIONS (3)
  - Injection site nodule [Recovering/Resolving]
  - Injection site bruising [Recovering/Resolving]
  - Injection site pruritus [Recovering/Resolving]
